FAERS Safety Report 25975495 (Version 2)
Quarter: 2025Q4

REPORT INFORMATION
  Report Type: Spontaneous
  Country: US (occurrence: US)
  Receive Date: 20251029
  Receipt Date: 20251124
  Transmission Date: 20260118
  Serious: Yes (Life-Threatening, Hospitalization, Other)
  Sender: FRESENIUS KABI
  Company Number: US-FreseniusKabi-FK202514296

PATIENT
  Age: 26 Year
  Sex: Female
  Weight: 82 kg

DRUGS (2)
  1. TYENNE [Suspect]
     Active Substance: TOCILIZUMAB-AAZG
     Indication: Rheumatoid arthritis
     Dosage: INJECTION?FIRST INFUSION?NDC UNKNOWN
     Route: 042
     Dates: start: 20250919
  2. TYENNE [Suspect]
     Active Substance: TOCILIZUMAB-AAZG
     Dosage: INJECTION?INTRAVENOUS VIA INFUSION?SECOND INFUSION
     Route: 042
     Dates: start: 20251017, end: 20251017

REACTIONS (1)
  - Anaphylactic reaction [Not Recovered/Not Resolved]

NARRATIVE: CASE EVENT DATE: 20251017
